FAERS Safety Report 17801176 (Version 1)
Quarter: 2020Q2

REPORT INFORMATION
  Report Type: Spontaneous
  Country: US (occurrence: US)
  Receive Date: 20200519
  Receipt Date: 20200519
  Transmission Date: 20200714
  Serious: No
  Sender: FDA-Public Use
  Company Number: US-JNJFOC-20200422155

PATIENT
  Age: 36 Year
  Sex: Female

DRUGS (3)
  1. TYLENOL [Suspect]
     Active Substance: ACETAMINOPHEN
     Indication: HEADACHE
     Dosage: AS NEEDED
     Route: 065
     Dates: start: 20200415
  2. STELARA [Concomitant]
     Active Substance: USTEKINUMAB
     Indication: CROHN^S DISEASE
     Route: 065
     Dates: start: 20200414
  3. TYLENOL [Suspect]
     Active Substance: ACETAMINOPHEN
     Indication: ADVERSE DRUG REACTION

REACTIONS (1)
  - Headache [Unknown]
